FAERS Safety Report 12071956 (Version 1)
Quarter: 2016Q1

REPORT INFORMATION
  Report Type: Report from Study
  Country: US (occurrence: US)
  Receive Date: 20160212
  Receipt Date: 20160212
  Transmission Date: 20160526
  Serious: Yes (Other)
  Sender: FDA-Public Use
  Company Number: US-AMGEN-USASL2016015970

PATIENT
  Age: 32 Year
  Sex: Female

DRUGS (1)
  1. ENBREL [Suspect]
     Active Substance: ETANERCEPT
     Indication: RHEUMATOID ARTHRITIS
     Dosage: UNK UNK, UNK
     Route: 065
     Dates: start: 2006

REACTIONS (6)
  - Injection site pain [Unknown]
  - Sinusitis [Unknown]
  - Device use error [Unknown]
  - Rheumatoid arthritis [Unknown]
  - Incorrect drug administration duration [Unknown]
  - Device difficult to use [Unknown]
